FAERS Safety Report 20818376 (Version 1)
Quarter: 2022Q2

REPORT INFORMATION
  Report Type: Spontaneous
  Country: NL (occurrence: NL)
  Receive Date: 20220512
  Receipt Date: 20220512
  Transmission Date: 20220720
  Serious: Yes (Hospitalization)
  Sender: FDA-Public Use
  Company Number: None

PATIENT
  Age: 2 Year
  Sex: Female
  Weight: 12.6 kg

DRUGS (8)
  1. VANCOMYCIN [Suspect]
     Active Substance: VANCOMYCIN
     Indication: Sepsis
     Dosage: STRENGTH:10 MG/ML, 4 DD 300 MG
     Dates: end: 20210621
  2. SODIUM CHLORIDE [Concomitant]
     Active Substance: SODIUM CHLORIDE
     Dosage: STRENGTH:9 MG/ML, AS REQUIRED
  3. CEFUROXIME [Concomitant]
     Active Substance: CEFUROXIME
     Dosage: 3 DD 440 MG
     Dates: start: 20210618, end: 20210621
  4. GLUCOGEL [Concomitant]
     Dosage: AS REQUIRED
  5. URSODIOL [Concomitant]
     Active Substance: URSODIOL
     Dosage: 2 DD 125 MG, STRENGTH:300MG
  6. WARFARIN [Concomitant]
     Active Substance: WARFARIN
     Dosage: 1 DD 0.6 ML, STRENGTH: 5 MG/ML
  7. TAUROLIDINE [Concomitant]
     Active Substance: TAUROLIDINE
     Dosage: 1 DD 2 ML,  INSTILLATION SOLUTION 20 MG/ML
  8. METRONIDAZOLE [Concomitant]
     Active Substance: METRONIDAZOLE
     Dosage: 3 DD 130

REACTIONS (2)
  - Alanine aminotransferase increased [Recovered/Resolved]
  - Aspartate aminotransferase increased [Recovered/Resolved]

NARRATIVE: CASE EVENT DATE: 20210620
